FAERS Safety Report 9552527 (Version 1)
Quarter: 2013Q3

REPORT INFORMATION
  Report Type: Spontaneous
  Country: US (occurrence: None)
  Receive Date: 20130724
  Receipt Date: 20130724
  Transmission Date: 20140515
  Serious: Yes (Other)
  Sender: FDA-Public Use
  Company Number: PHEH2013US008097

PATIENT
  Age: 56 Year
  Sex: Female

DRUGS (4)
  1. DIOVAN HCT (VALSARTAN, HYDROCHLOROTHIAZIDE) UNKNOWN [Suspect]
     Dosage: 320MG VALS 25MG HCTZ), ONCE A DAY
  2. MAGNESIUM [Concomitant]
  3. D3 [Concomitant]
  4. B6 [Concomitant]

REACTIONS (3)
  - Hypertension [None]
  - Incorrect dose administered [None]
  - Palpitations [None]
